FAERS Safety Report 4641601-5 (Version None)
Quarter: 2005Q2

REPORT INFORMATION
  Report Type: 
  Country: None (occurrence: None)
  Receive Date: 20050420
  Receipt Date: 20050401
  Transmission Date: 20051028
  Serious: Yes (Other)
  Sender: FDA-Public Use
  Company Number: 2005-DE-01284GD

PATIENT
  Sex: Female

DRUGS (3)
  1. CLONIDINE [Suspect]
     Indication: COMPLEX REGIONAL PAIN SYNDROME
     Dosage: SEE IMAGE
     Route: 037
     Dates: end: 20000301
  2. CLONIDINE [Suspect]
     Indication: COMPLEX REGIONAL PAIN SYNDROME
     Dosage: SEE IMAGE
     Route: 037
     Dates: start: 20010401, end: 20040201
  3. MORPHINE [Suspect]
     Indication: COMPLEX REGIONAL PAIN SYNDROME
     Dosage: 15 MG (17.5 MG), IT
     Route: 037
     Dates: start: 20010401, end: 20040201

REACTIONS (11)
  - ARTHRALGIA [None]
  - ASTHENIA [None]
  - CATHETER RELATED COMPLICATION [None]
  - DEFORMITY [None]
  - GRANULOMA [None]
  - INADEQUATE ANALGESIA [None]
  - MERALGIA PARAESTHETICA [None]
  - MICTURITION URGENCY [None]
  - SPINAL CORD COMPRESSION [None]
  - SPINAL CORD DISORDER [None]
  - URINARY INCONTINENCE [None]
